FAERS Safety Report 9069043 (Version 1)
Quarter: 2013Q1

REPORT INFORMATION
  Report Type: Spontaneous
  Country: US (occurrence: US)
  Receive Date: 20130215
  Receipt Date: 20130215
  Transmission Date: 20140127
  Serious: No
  Sender: FDA-Public Use
  Company Number: US-PFIZER INC-2013057464

PATIENT
  Sex: Female

DRUGS (3)
  1. MORPHINE SULFATE [Suspect]
     Dosage: UNK
  2. HEPARIN SODIUM [Suspect]
     Dosage: UNK
  3. ACETYLSALICYLIC ACID [Suspect]
     Dosage: UNK

REACTIONS (1)
  - Drug hypersensitivity [Unknown]
